FAERS Safety Report 22890201 (Version 11)
Quarter: 2024Q4

REPORT INFORMATION
  Report Type: Spontaneous
  Country: US (occurrence: US)
  Receive Date: 20230831
  Receipt Date: 20241125
  Transmission Date: 20250114
  Serious: Yes (Disabling, Other)
  Sender: AMGEN
  Company Number: US-HORIZON THERAPEUTICS-HZN-2023-006568

PATIENT
  Age: 59 Year
  Sex: Female

DRUGS (23)
  1. TEPEZZA [Suspect]
     Active Substance: TEPROTUMUMAB-TRBW
     Indication: Endocrine ophthalmopathy
     Dosage: 660 MILLIGRAM (FIRST INFUSION)
     Route: 042
     Dates: start: 20211210
  2. TEPEZZA [Suspect]
     Active Substance: TEPROTUMUMAB-TRBW
     Indication: Graves^ disease
     Dosage: 1320 MILLIGRAM (SECOND INFUSION)
     Route: 042
     Dates: start: 20211229
  3. TEPEZZA [Suspect]
     Active Substance: TEPROTUMUMAB-TRBW
     Dosage: 1320 MILLIGRAM (THIRD INFUSION)
     Route: 042
     Dates: start: 20220120
  4. TEPEZZA [Suspect]
     Active Substance: TEPROTUMUMAB-TRBW
     Dosage: 1320 MILLIGRAM (FOURTH INFUSION)
     Route: 042
     Dates: start: 20220209
  5. TEPEZZA [Suspect]
     Active Substance: TEPROTUMUMAB-TRBW
     Dosage: 1320 MILLIGRAM (FIFTH INFUSION)
     Route: 042
     Dates: start: 20220302
  6. TEPEZZA [Suspect]
     Active Substance: TEPROTUMUMAB-TRBW
     Dosage: 1320 MILLIGRAM (SIXTH INFUSION)
     Route: 042
     Dates: start: 20220323
  7. TEPEZZA [Suspect]
     Active Substance: TEPROTUMUMAB-TRBW
     Dosage: 1320 MILLIGRAM (SEVENTH INFUSION)
     Route: 042
     Dates: start: 20220414
  8. TEPEZZA [Suspect]
     Active Substance: TEPROTUMUMAB-TRBW
     Dosage: 1320 MILLIGRAM (EIGHTH INFUSION)
     Route: 042
     Dates: start: 20220503, end: 202205
  9. OMEPRAZOLE [Concomitant]
     Active Substance: OMEPRAZOLE
     Dosage: 20 MILLIGRAM, QD
     Route: 048
  10. VITAMIN B COMPLEX [Concomitant]
     Active Substance: CYANOCOBALAMIN\DEXPANTHENOL\NIACINAMIDE\PYRIDOXINE HYDROCHLORIDE\RIBOFLAVIN 5^-PHOSPHATE SODIUM\THIA
  11. PRILOSEC [Concomitant]
     Active Substance: OMEPRAZOLE MAGNESIUM
  12. CRESTOR [Concomitant]
     Active Substance: ROSUVASTATIN CALCIUM
  13. WELLBUTRIN [Concomitant]
     Active Substance: BUPROPION HYDROCHLORIDE
     Dosage: 150 MILLIGRAM, BID
     Route: 048
  14. CALCIPOTRIENE [Concomitant]
     Active Substance: CALCIPOTRIENE
  15. CEPHALEXIN [Concomitant]
     Active Substance: CEPHALEXIN
     Dosage: 500 MILLIGRAM
  16. ONDANSETRON [Concomitant]
     Active Substance: ONDANSETRON
     Dosage: 8 MILLIGRAM
  17. PERCOCET [Concomitant]
     Active Substance: ACETAMINOPHEN\OXYCODONE HYDROCHLORIDE
  18. ROSUVASTATIN [Concomitant]
     Active Substance: ROSUVASTATIN
     Dosage: 10 MILLIGRAM
  19. KEFLEX [Concomitant]
     Active Substance: CEPHALEXIN
     Dosage: 500 MILLIGRAM, TID
  20. VITAMINS [Concomitant]
     Active Substance: VITAMINS
  21. CYANOCOBALAMIN [Concomitant]
     Active Substance: CYANOCOBALAMIN
     Dosage: 500 MILLIGRAM
  22. BUPROPION [Concomitant]
     Active Substance: BUPROPION
     Dosage: 150 MILLIGRAM, QD
     Route: 048
  23. OCUVITE [Concomitant]
     Active Substance: VITAMINS

REACTIONS (33)
  - Physical disability [Unknown]
  - Disability [Unknown]
  - Deafness neurosensory [Unknown]
  - Scleroderma [Unknown]
  - Strabismus [Unknown]
  - Pain [Unknown]
  - Deformity [Unknown]
  - Injury [Unknown]
  - Anxiety [Unknown]
  - Concomitant disease aggravated [Unknown]
  - Discomfort [Unknown]
  - Impaired quality of life [Unknown]
  - Auditory disorder [Unknown]
  - Emotional distress [Unknown]
  - Tinnitus [Unknown]
  - Alopecia [Unknown]
  - Myalgia [Unknown]
  - Weight decreased [Unknown]
  - Dysgeusia [Not Recovered/Not Resolved]
  - Obesity [Unknown]
  - Osteoarthritis [Unknown]
  - Hypertension [Unknown]
  - Glucose tolerance impaired [Unknown]
  - Onychoclasis [Unknown]
  - Muscle spasms [Not Recovered/Not Resolved]
  - Libido decreased [Unknown]
  - Visual impairment [Unknown]
  - Vulvitis [Unknown]
  - Hot flush [Unknown]
  - Dermal cyst [Unknown]
  - Abscess [Unknown]
  - Economic problem [Unknown]
  - Product quality issue [Unknown]

NARRATIVE: CASE EVENT DATE: 20210101
